FAERS Safety Report 9432142 (Version 1)
Quarter: 2013Q3

REPORT INFORMATION
  Report Type: Spontaneous
  Country: US (occurrence: US)
  Receive Date: 20130731
  Receipt Date: 20130731
  Transmission Date: 20140515
  Serious: No
  Sender: FDA-Public Use
  Company Number: US-PFIZER INC-2013222611

PATIENT
  Age: 60 Year
  Sex: Female
  Weight: 117.91 kg

DRUGS (3)
  1. IBUPROFEN [Suspect]
     Dosage: UNK
  2. OMNICEF [Suspect]
     Dosage: UNK
  3. MACRODANTIN [Suspect]
     Dosage: UNK

REACTIONS (1)
  - Drug hypersensitivity [Unknown]
